FAERS Safety Report 4707601-1 (Version None)
Quarter: 2005Q3

REPORT INFORMATION
  Report Type: 
  Country: None (occurrence: None)
  Receive Date: 20050705
  Receipt Date: 20050624
  Transmission Date: 20060218
  Serious: Yes (Hospitalization)
  Sender: FDA-Public Use
  Company Number: B0381736A

PATIENT
  Age: 18 Month
  Sex: Male

DRUGS (3)
  1. SALBUTAMOL SULPHATE HFA-CFC FREE INHALER(ALBUTEROL SULFATE) [Suspect]
     Dosage: INHALED
     Route: 055
  2. HYDROCORTISONE [Suspect]
     Dosage: 300MG/SEE DOSAGE TEXT/INTRAVENO
     Route: 042
  3. AMINOPHYLLIN [Suspect]
     Dosage: 250 MG SEE DOSAGE TEXT/INTRAVENO
     Route: 042

REACTIONS (14)
  - ABDOMINAL DISTENSION [None]
  - BLOOD CREATININE ABNORMAL [None]
  - BLOOD GLUCOSE INCREASED [None]
  - BOWEL SOUNDS ABNORMAL [None]
  - DRUG TOXICITY [None]
  - HYPERAMYLASAEMIA [None]
  - IRRITABILITY [None]
  - NAUSEA [None]
  - PANCREATITIS [None]
  - PYREXIA [None]
  - TACHYCARDIA [None]
  - TACHYPNOEA [None]
  - VOMITING [None]
  - WHITE BLOOD CELL COUNT INCREASED [None]
